FAERS Safety Report 5535822-7 (Version None)
Quarter: 2007Q4

REPORT INFORMATION
  Report Type: 
  Country: None (occurrence: None)
  Receive Date: 20071206
  Receipt Date: 20071128
  Transmission Date: 20080405
  Serious: Yes (Hospitalization)
  Sender: FDA-Public Use
  Company Number: B0495196A

PATIENT
  Age: 63 Year
  Sex: Female
  Weight: 62.1 kg

DRUGS (2)
  1. LAPATINIB [Suspect]
     Route: 048
     Dates: start: 20070221, end: 20070409
  2. CAPECITABINE [Suspect]
     Route: 048
     Dates: start: 20070221, end: 20070409

REACTIONS (1)
  - INGUINAL HERNIA [None]
